FAERS Safety Report 11687460 (Version 2)
Quarter: 2015Q4

REPORT INFORMATION
  Report Type: Spontaneous
  Country: IT (occurrence: IT)
  Receive Date: 20151030
  Receipt Date: 20151225
  Transmission Date: 20160304
  Serious: Yes (Other)
  Sender: FDA-Public Use
  Company Number: IT-BRISTOL-MYERS SQUIBB COMPANY-BMS-2015-071796

PATIENT
  Age: 89 Year
  Sex: Male

DRUGS (2)
  1. CARDIOASPIRIN [Interacting]
     Active Substance: ASPIRIN
     Indication: PROPHYLAXIS
     Dosage: 1 DF, QD
     Route: 048
     Dates: start: 20140101, end: 20150927
  2. COUMADIN [Suspect]
     Active Substance: WARFARIN SODIUM
     Indication: ATRIAL FIBRILLATION
     Dosage: 1 DF, PRN
     Route: 048
     Dates: start: 20140101, end: 20150927

REACTIONS (3)
  - Tooth extraction [Recovering/Resolving]
  - Procedural haemorrhage [Recovering/Resolving]
  - Labelled drug-drug interaction medication error [Recovering/Resolving]

NARRATIVE: CASE EVENT DATE: 20150927
